FAERS Safety Report 17446409 (Version 1)
Quarter: 2020Q1

REPORT INFORMATION
  Report Type: Spontaneous
  Country: US (occurrence: US)
  Receive Date: 20200221
  Receipt Date: 20200221
  Transmission Date: 20200409
  Serious: No
  Sender: FDA-Public Use
  Company Number: US-BRACCO-2019US02320

PATIENT
  Age: 57 Year
  Sex: Female

DRUGS (1)
  1. ISOVUE [Suspect]
     Active Substance: IOPAMIDOL
     Indication: X-RAY
     Dosage: 3 ML, SINGLE
     Route: 008
     Dates: start: 20190404, end: 20190404

REACTIONS (2)
  - No adverse event [Recovered/Resolved]
  - Wrong product administered [Unknown]

NARRATIVE: CASE EVENT DATE: 20190404
